FAERS Safety Report 17194178 (Version 2)
Quarter: 2020Q3

REPORT INFORMATION
  Report Type: Spontaneous
  Country: JP (occurrence: JP)
  Receive Date: 20191224
  Receipt Date: 20200715
  Transmission Date: 20201102
  Serious: Yes (Hospitalization, Other)
  Sender: FDA-Public Use
  Company Number: JP-SA-2019SA352082

PATIENT

DRUGS (10)
  1. CYTARABINE. [Concomitant]
     Active Substance: CYTARABINE
     Indication: ACUTE MYELOID LEUKAEMIA
     Dosage: 2 G/M2, FROM DAY ?10 TO DAY ?7
     Route: 065
     Dates: start: 20140917, end: 20140920
  2. CYTARABINE. [Concomitant]
     Active Substance: CYTARABINE
     Dosage: UNK
     Route: 065
     Dates: start: 2011
  3. MELPHALAN. [Concomitant]
     Active Substance: MELPHALAN
     Indication: PREMEDICATION
     Dosage: 70 MG/M2, ON DAY ?6 AND DAY ?5
     Route: 065
     Dates: start: 20140921, end: 20140922
  4. CYTARABINE. [Concomitant]
     Active Substance: CYTARABINE
     Indication: PREMEDICATION
     Dosage: UNK
     Route: 065
     Dates: start: 2009
  5. TACROLIMUS MONOHYDRATE [Suspect]
     Active Substance: TACROLIMUS
     Indication: PROPHYLAXIS
     Dosage: 10?12 NG/ML, FROM DAY ?3
     Route: 065
     Dates: start: 20140924
  6. CYTARABINE. [Concomitant]
     Active Substance: CYTARABINE
     Dosage: UNK
     Route: 065
     Dates: start: 2010
  7. METHYLPREDNISOLONE. [Concomitant]
     Active Substance: METHYLPREDNISOLONE
     Indication: PROPHYLAXIS
     Dosage: 1 MG/KG/DAY, FROM DAY 0
     Route: 065
     Dates: start: 20140927
  8. THYMOGLOBULINE [Suspect]
     Active Substance: LAPINE T-LYMPHOCYTE IMMUNE GLOBULIN
     Indication: PREMEDICATION
     Dosage: 2.5 MG/KG IN TOTAL, FROM DAY ?3 TO DAY ?1
     Route: 041
     Dates: start: 20140924, end: 20140926
  9. FLUDARA [Suspect]
     Active Substance: FLUDARABINE PHOSPHATE
     Indication: ACUTE MYELOID LEUKAEMIA
     Dosage: 30 MG/M2, FROM DAY ?10 TO DAY ?5
     Route: 042
     Dates: start: 20140917, end: 20140922
  10. FLUDARA [Suspect]
     Active Substance: FLUDARABINE PHOSPHATE
     Indication: PREMEDICATION
     Dosage: UNK
     Route: 042
     Dates: start: 2011

REACTIONS (12)
  - Blood lactate dehydrogenase increased [Recovering/Resolving]
  - Haptoglobin decreased [Recovering/Resolving]
  - Cytomegalovirus chorioretinitis [Recovering/Resolving]
  - Red cell fragmentation syndrome [Recovering/Resolving]
  - Renal impairment [Recovering/Resolving]
  - Haemoglobin decreased [Recovering/Resolving]
  - Vitreous floaters [Recovering/Resolving]
  - Thrombotic microangiopathy [Recovering/Resolving]
  - Refractoriness to platelet transfusion [Recovering/Resolving]
  - Haemolytic anaemia [Recovering/Resolving]
  - Coagulopathy [Recovering/Resolving]
  - Fibrin D dimer increased [Recovering/Resolving]

NARRATIVE: CASE EVENT DATE: 20141003
